FAERS Safety Report 10972703 (Version 1)
Quarter: 2015Q1

REPORT INFORMATION
  Report Type: Other
  Country: DE (occurrence: DE)
  Receive Date: 20150331
  Receipt Date: 20150331
  Transmission Date: 20150721
  Serious: Yes (Life-Threatening)
  Sender: FDA-Public Use
  Company Number: DE-MYLANLABS-2015M1009324

PATIENT

DRUGS (3)
  1. NIFEDIPIN RETARD [Concomitant]
     Dosage: 20 MG, BID (DAILY DOSE: 40 MG MILLGRAM(S) EVERY DAYS)
     Dates: start: 2010
  2. AMIODARONE HYDROCHLORIDE. [Suspect]
     Active Substance: AMIODARONE HYDROCHLORIDE
     Indication: ATRIAL FIBRILLATION
     Dosage: 200 MG, TID (DAILY DOSE: 600 MG MILLGRAM(S) EVERY DAYS)
     Dates: start: 20141218, end: 20141222
  3. BISOPROLOL [Concomitant]
     Active Substance: BISOPROLOL
     Indication: HYPERTENSION
     Dosage: 5 MG, BID (DAILY DOSE: 10 MG MILLGRAM(S) EVERY DAYS)
     Route: 048
     Dates: start: 2010, end: 20150129

REACTIONS (9)
  - Abdominal pain upper [Recovered/Resolved]
  - Dizziness [Recovered/Resolved]
  - Condition aggravated [Recovered/Resolved]
  - Ataxia [Recovered/Resolved]
  - Muscular weakness [Recovered/Resolved]
  - Nausea [Recovered/Resolved]
  - Respiratory distress [Recovered/Resolved]
  - Insomnia [Recovered/Resolved]
  - Cheyne-Stokes respiration [Recovered/Resolved]

NARRATIVE: CASE EVENT DATE: 20141218
